FAERS Safety Report 6828805-8 (Version None)
Quarter: 2010Q3

REPORT INFORMATION
  Report Type: 
  Country: None (occurrence: None)
  Receive Date: 20100709
  Receipt Date: 20070216
  Transmission Date: 20110219
  Serious: No
  Sender: FDA-Public Use
  Company Number: US-PFIZER INC-2007014433

PATIENT
  Sex: Female
  Weight: 73.48 kg

DRUGS (7)
  1. CHANTIX [Suspect]
     Indication: SMOKING CESSATION THERAPY
     Dates: start: 20070202
  2. CRESTOR [Concomitant]
  3. LEXAPRO [Concomitant]
  4. MONOPRIL-HCT [Concomitant]
  5. FISH OIL [Concomitant]
  6. VITAMINS [Concomitant]
  7. CALCIUM WITH VITAMIN D [Concomitant]

REACTIONS (1)
  - NAUSEA [None]
